FAERS Safety Report 25018468 (Version 1)
Quarter: 2025Q1

REPORT INFORMATION
  Report Type: Spontaneous
  Country: US (occurrence: US)
  Receive Date: 20250227
  Receipt Date: 20250227
  Transmission Date: 20250408
  Serious: No
  Sender: AVADEL CNS PHARMACEUTICALS, LLC
  Company Number: US-AVADEL CNS PHARMACEUTICALS, LLC-2024AVA02476

PATIENT
  Sex: Male
  Weight: 104.31 kg

DRUGS (13)
  1. LUMRYZ [Suspect]
     Active Substance: SODIUM OXYBATE
     Indication: Narcolepsy
     Dosage: 4.5 G, ONCE NIGHTLY
     Route: 048
     Dates: start: 202412, end: 202412
  2. LUMRYZ [Suspect]
     Active Substance: SODIUM OXYBATE
     Indication: Narcolepsy
     Dosage: 6 G, ONCE NIGHTLY
     Route: 048
     Dates: start: 202412
  3. METOPROLOL [Concomitant]
     Active Substance: METOPROLOL
  4. ROPINIROLE [Concomitant]
     Active Substance: ROPINIROLE
  5. METFORMIN [Concomitant]
     Active Substance: METFORMIN HYDROCHLORIDE
  6. JARDIANCE [Concomitant]
     Active Substance: EMPAGLIFLOZIN
  7. OZEMPIC [Concomitant]
     Active Substance: SEMAGLUTIDE
  8. EMGALITY [Concomitant]
     Active Substance: GALCANEZUMAB-GNLM
  9. ATOMOXETINE [Concomitant]
     Active Substance: ATOMOXETINE
  10. MODAFINIL [Concomitant]
     Active Substance: MODAFINIL
  11. STIOLTO RESPIMAT [Concomitant]
     Active Substance: OLODATEROL HYDROCHLORIDE\TIOTROPIUM BROMIDE MONOHYDRATE
  12. UNSPECIFIED INGREDIENT [Concomitant]
     Active Substance: UNSPECIFIED INGREDIENT
  13. UNSPECIFIED NASAL SPRAYS [Concomitant]

REACTIONS (2)
  - Insomnia [Not Recovered/Not Resolved]
  - Somnolence [Not Recovered/Not Resolved]
